FAERS Safety Report 19992803 (Version 1)
Quarter: 2021Q4

REPORT INFORMATION
  Report Type: Spontaneous
  Country: US (occurrence: US)
  Receive Date: 20211025
  Receipt Date: 20211025
  Transmission Date: 20220303
  Serious: No
  Sender: FDA-Public Use
  Company Number: US-ENDO PHARMACEUTICALS INC-2021-011210

PATIENT
  Sex: Female
  Weight: 58.96 kg

DRUGS (1)
  1. QWO [Suspect]
     Active Substance: COLLAGENASE CLOSTRIDIUM HISTOLYTICUM-AAES
     Indication: Peau d^orange
     Dosage: 0.92 MG, (FIRST TREATMENT) (TWELVE INJECTIONS)
     Route: 065
     Dates: start: 20210630, end: 20210630

REACTIONS (1)
  - Haemosiderin stain [Not Recovered/Not Resolved]

NARRATIVE: CASE EVENT DATE: 20210101
